FAERS Safety Report 26179952 (Version 1)
Quarter: 2025Q4

REPORT INFORMATION
  Report Type: Spontaneous
  Country: US (occurrence: None)
  Receive Date: 20251219
  Receipt Date: 20251219
  Transmission Date: 20260118
  Serious: Yes (Death)
  Sender: FDA-CTU
  Company Number: None

PATIENT
  Age: 84 Year
  Sex: Male
  Weight: 73.8 kg

DRUGS (14)
  1. REVLIMID [Suspect]
     Active Substance: LENALIDOMIDE
     Indication: Plasma cell myeloma
     Dates: start: 20241022, end: 20251110
  2. acetaminophen 325 mg tablet [Concomitant]
  3. apalutamide 240 mg tablet [Concomitant]
  4. ASPIRIN [Concomitant]
     Active Substance: ASPIRIN
  5. ATORVASTATIN [Concomitant]
     Active Substance: ATORVASTATIN
  6. carbidopa 10 mg?levodopa 100 mg table [Concomitant]
  7. clopidogrel 75 mg tablet [Concomitant]
  8. dapagliflozin propanediol 10 mg tablet [Concomitant]
  9. dulaglutide 1.5 mg/0.5 mL subcutaneous pen injector [Concomitant]
  10. Erleada 240 mg tablet [Concomitant]
  11. fluoxetine 40 mg capsule [Concomitant]
  12. gabapentin 400 mg capsul [Concomitant]
  13. insulin lispro protamine?lispro 100 unit/mL [Concomitant]
  14. losartan 25 mg tablet, [Concomitant]

REACTIONS (1)
  - Death [None]

NARRATIVE: CASE EVENT DATE: 20251125
